FAERS Safety Report 9405595 (Version 3)
Quarter: 2013Q3

REPORT INFORMATION
  Report Type: Spontaneous
  Country: FR (occurrence: FR)
  Receive Date: 20130717
  Receipt Date: 20130806
  Transmission Date: 20140515
  Serious: Yes (Other)
  Sender: FDA-Public Use
  Company Number: FR-JNJFOC-20130707334

PATIENT
  Age: 47 Year
  Sex: Female

DRUGS (2)
  1. INFLIXIMAB, RECOMBINANT [Suspect]
     Indication: VOGT-KOYANAGI-HARADA SYNDROME
     Route: 042
  2. METHOTREXATE [Suspect]
     Indication: VOGT-KOYANAGI-HARADA SYNDROME
     Route: 065

REACTIONS (3)
  - Tuberculosis [Recovered/Resolved]
  - Off label use [Unknown]
  - Therapeutic response unexpected [Unknown]
